FAERS Safety Report 15330142 (Version 1)
Quarter: 2018Q3

REPORT INFORMATION
  Report Type: Report from Study
  Country: BR (occurrence: BR)
  Receive Date: 20180829
  Receipt Date: 20180829
  Transmission Date: 20181010
  Serious: Yes (Other)
  Sender: FDA-Public Use
  Company Number: PHHY2018BR084632

PATIENT
  Sex: Female
  Weight: 90 kg

DRUGS (1)
  1. ACLASTA [Suspect]
     Active Substance: ZOLEDRONIC ACID
     Indication: OSTEITIS DEFORMANS
     Dosage: 1 DF, Q12MO
     Route: 042

REACTIONS (4)
  - Body height decreased [Not Recovered/Not Resolved]
  - Pain [Unknown]
  - Fall [Unknown]
  - Femur fracture [Not Recovered/Not Resolved]
